FAERS Safety Report 9302138 (Version 3)
Quarter: 2013Q4

REPORT INFORMATION
  Report Type: Spontaneous
  Country: US (occurrence: US)
  Receive Date: 20130522
  Receipt Date: 20131104
  Transmission Date: 20140711
  Serious: Yes (Hospitalization)
  Sender: FDA-Public Use
  Company Number: US-B.I. PHARMACEUTICALS,INC./RIDGEFIELD-2013-BI-14225BP

PATIENT
  Age: 76 Year
  Sex: Male
  Weight: 104.33 kg

DRUGS (19)
  1. PRADAXA [Suspect]
     Indication: ANTICOAGULANT THERAPY
     Dosage: 300 MG
     Dates: start: 20111119, end: 20120418
  2. PRADAXA [Suspect]
     Indication: ATRIAL FIBRILLATION
  3. ALBUTEROL [Concomitant]
     Dosage: 2.5 MG
  4. AMILORIDE [Concomitant]
     Dosage: 5 MG
     Dates: start: 2010
  5. BROVANA [Concomitant]
     Dates: start: 2010
  6. BUMEX [Concomitant]
     Dosage: 2 MG
  7. CITALOPRAM [Concomitant]
     Dosage: 40 MG
     Dates: start: 2010
  8. DIGOXIN [Concomitant]
     Dosage: 0.25 MG
     Dates: start: 2011
  9. DILTIAZEM [Concomitant]
     Dosage: 180 MG
     Dates: start: 2011
  10. DOXAZOSIN [Concomitant]
     Dosage: 4 MG
     Dates: start: 1999
  11. GLYBURIDE [Concomitant]
     Dosage: 5 MG
     Dates: start: 2011
  12. LISINOPRIL [Concomitant]
     Dosage: 2.5 MG
  13. METFORMIN [Concomitant]
     Dosage: 500 MG
     Dates: start: 2009
  14. NIACIN [Concomitant]
     Dosage: 1000 MG
  15. SEROQUEL [Concomitant]
     Dosage: 400 MG
     Dates: start: 2010
  16. SPIRIVA [Concomitant]
     Route: 055
     Dates: start: 2006
  17. BUTANIDE [Concomitant]
     Dosage: 2 MG
     Dates: start: 2010
  18. XOPENEX HHN [Concomitant]
     Dates: start: 2006
  19. NEXIUM [Concomitant]
     Dosage: 40 MG
     Dates: start: 2011

REACTIONS (3)
  - Upper gastrointestinal haemorrhage [Unknown]
  - Normochromic normocytic anaemia [Recovered/Resolved]
  - Contusion [Unknown]
